FAERS Safety Report 14284218 (Version 4)
Quarter: 2018Q4

REPORT INFORMATION
  Report Type: Spontaneous
  Country: US (occurrence: US)
  Receive Date: 20171214
  Receipt Date: 20181126
  Transmission Date: 20190204
  Serious: Yes (Hospitalization, Other)
  Sender: FDA-Public Use
  Company Number: US-JNJFOC-20171210926

PATIENT
  Sex: Female
  Weight: 72.58 kg

DRUGS (2)
  1. KETOCONAZOLE. [Suspect]
     Active Substance: KETOCONAZOLE
     Indication: PRODUCT USED FOR UNKNOWN INDICATION
     Route: 061
     Dates: start: 200402, end: 20171204
  2. NIZORAL [Suspect]
     Active Substance: KETOCONAZOLE
     Indication: PRODUCT USED FOR UNKNOWN INDICATION
     Route: 061
     Dates: start: 200402, end: 20171204

REACTIONS (6)
  - Herpes zoster [Recovered/Resolved]
  - Hair texture abnormal [Unknown]
  - Expired product administered [Unknown]
  - Trichorrhexis [Unknown]
  - Breast cancer [Unknown]
  - Product label issue [Unknown]

NARRATIVE: CASE EVENT DATE: 2014
